FAERS Safety Report 4667190-7 (Version None)
Quarter: 2005Q2

REPORT INFORMATION
  Report Type: 
  Country: None (occurrence: None)
  Receive Date: 20050520
  Receipt Date: 20050511
  Transmission Date: 20051028
  Serious: Yes (Hospitalization)
  Sender: FDA-Public Use
  Company Number: US-KINGPHARMUSA00001-K200500609

PATIENT
  Age: 79 Year
  Sex: Male

DRUGS (8)
  1. ALTACE [Suspect]
  2. NEXIUM [Suspect]
  3. ASS ^CT-ARZNEIMITTEL^ [Suspect]
  4. ATORVASTATIN CALCIUM [Suspect]
  5. NEBILET [Concomitant]
     Indication: HYPERTENSION
     Route: 048
  6. UROXATRAL [Concomitant]
     Indication: BENIGN PROSTATIC HYPERPLASIA
     Route: 048
  7. CERNILTON [Concomitant]
     Indication: BENIGN PROSTATIC HYPERPLASIA
     Route: 048
  8. SIOFOR [Concomitant]
     Indication: DIABETES MELLITUS
     Dosage: 850 MG, UNK
     Route: 048
     Dates: start: 20040305, end: 20050404

REACTIONS (4)
  - CHEST PAIN [None]
  - DYSPNOEA [None]
  - HEART RATE IRREGULAR [None]
  - SYNCOPE [None]
